FAERS Safety Report 11847213 (Version 1)
Quarter: 2015Q4

REPORT INFORMATION
  Report Type: Spontaneous
  Country: US (occurrence: US)
  Receive Date: 20151217
  Receipt Date: 20151217
  Transmission Date: 20160305
  Serious: No
  Sender: FDA-Public Use
  Company Number: US-ROCHE-1515256

PATIENT
  Age: 10 Year
  Sex: Male

DRUGS (1)
  1. TAMIFLU [Suspect]
     Active Substance: OSELTAMIVIR PHOSPHATE
     Indication: INFLUENZA LIKE ILLNESS
     Route: 065
     Dates: start: 20141223, end: 20141224

REACTIONS (2)
  - Body temperature increased [Not Recovered/Not Resolved]
  - Vomiting [Recovered/Resolved]

NARRATIVE: CASE EVENT DATE: 20141223
